FAERS Safety Report 9585512 (Version 3)
Quarter: 2014Q1

REPORT INFORMATION
  Report Type: Report from Study
  Country: DK (occurrence: DK)
  Receive Date: 20131003
  Receipt Date: 20140120
  Transmission Date: 20141002
  Serious: Yes (Hospitalization)
  Sender: FDA-Public Use
  Company Number: DK-ROCHE-1280963

PATIENT
  Age: 62 Year
  Sex: Female

DRUGS (8)
  1. BEVACIZUMAB [Suspect]
     Indication: METASTATIC RENAL CELL CARCINOMA
     Route: 042
     Dates: start: 20130819
  2. INTERFERON ALFA-2A [Suspect]
     Indication: METASTATIC RENAL CELL CARCINOMA
     Dosage: DOSE: 3X10^6 X2
     Route: 058
     Dates: start: 20130812, end: 20131119
  3. INTERLEUKIN-2 [Suspect]
     Indication: METASTATIC RENAL CELL CARCINOMA
     Dosage: DOSE: 4.2X10^6
     Route: 058
     Dates: start: 20130819, end: 20131119
  4. KALEORID [Concomitant]
     Route: 065
     Dates: start: 20131115
  5. HJERTEMAGNYL [Concomitant]
     Route: 065
     Dates: start: 2007
  6. SIMVASTATIN [Concomitant]
     Route: 065
     Dates: start: 2011
  7. CALCIUM SANDOZ D [Concomitant]
     Route: 065
     Dates: start: 20131017
  8. ELTROXIN [Concomitant]
     Route: 065
     Dates: start: 20131014

REACTIONS (3)
  - Poor personal hygiene [Unknown]
  - Infection [Recovered/Resolved]
  - General physical health deterioration [Recovered/Resolved]
